FAERS Safety Report 8911959 (Version 1)
Quarter: 2012Q4

REPORT INFORMATION
  Report Type: 
  Country: US (occurrence: US)
  Receive Date: 20121116
  Receipt Date: 20121116
  Transmission Date: 20130627
  Serious: Yes (Other)
  Sender: FDA-Public Use
  Company Number: US-JNJFOC-20121102940

PATIENT
  Age: 34 Year
  Sex: Male
  Weight: 102.51 kg

DRUGS (3)
  1. SANDOZ FENTANYL TRANSDERMAL SYSTEM [Suspect]
     Indication: BACK PAIN
     Route: 062
     Dates: start: 20121031, end: 20121031
  2. ENDOCET [Concomitant]
     Indication: PAIN
     Route: 048
  3. GABAPENTIN [Concomitant]
     Indication: SCIATICA
     Route: 048

REACTIONS (6)
  - Loss of consciousness [Recovered/Resolved]
  - Disorientation [Recovered/Resolved]
  - Clumsiness [Recovered/Resolved]
  - Incoherent [Recovered/Resolved]
  - Hyperhidrosis [Recovered/Resolved]
  - Fatigue [Recovered/Resolved]
